FAERS Safety Report 4883179-7 (Version None)
Quarter: 2006Q1

REPORT INFORMATION
  Report Type: 
  Country: None (occurrence: None)
  Receive Date: 20060118
  Receipt Date: 20060106
  Transmission Date: 20060701
  Serious: Yes (Hospitalization)
  Sender: FDA-Public Use
  Company Number: FR-BRISTOL-MYERS SQUIBB COMPANY-13249107

PATIENT
  Age: 73 Year
  Sex: Female

DRUGS (13)
  1. ENDOXAN [Suspect]
     Route: 042
     Dates: start: 20051003, end: 20051103
  2. UROMITEXAN [Suspect]
     Route: 042
     Dates: start: 20051003, end: 20051103
  3. KARDEGIC [Concomitant]
  4. TOPALGIC [Concomitant]
  5. HYTACAND [Concomitant]
  6. TEMERIT [Concomitant]
  7. ZOLPIDEM TARTRATE [Concomitant]
  8. MOPRAL [Concomitant]
  9. MEPHENESIN [Concomitant]
  10. NEURONTIN [Concomitant]
  11. VITAMIN B1 + B6 [Concomitant]
  12. CACIT D3 [Concomitant]
  13. ACTONEL [Concomitant]

REACTIONS (4)
  - BRADYCARDIA [None]
  - HYPONATRAEMIA [None]
  - LOSS OF CONSCIOUSNESS [None]
  - MALAISE [None]
